FAERS Safety Report 21139006 (Version 3)
Quarter: 2022Q4

REPORT INFORMATION
  Report Type: 
  Country: None (occurrence: None)
  Receive Date: 20220727
  Receipt Date: 20221005
  Transmission Date: 20230112
  Serious: Yes (Hospitalization, Congenital Anomaly, Other)
  Sender: FDA-Public Use
  Company Number: None

PATIENT
  Age: 0 Year
  Sex: Male

DRUGS (1)
  1. MYORISAN [Suspect]
     Active Substance: ISOTRETINOIN

REACTIONS (14)
  - Renal impairment [Not Recovered/Not Resolved]
  - Renal fusion anomaly [Not Recovered/Not Resolved]
  - Renal dysplasia [Not Recovered/Not Resolved]
  - Pelvic kidney [Not Recovered/Not Resolved]
  - Anal atresia [Not Recovered/Not Resolved]
  - Genitalia external ambiguous [Recovered/Resolved]
  - Oligohydramnios [Recovered/Resolved]
  - Foetal growth restriction [Recovered/Resolved]
  - Nonreassuring foetal heart rate pattern [Recovered/Resolved]
  - Premature labour [Recovered/Resolved]
  - Premature delivery [Recovered/Resolved]
  - Premature baby [Not Recovered/Not Resolved]
  - Spina bifida [Unknown]
  - Low birth weight baby [Unknown]

NARRATIVE: CASE EVENT DATE: 20220618
